FAERS Safety Report 20899690 (Version 1)
Quarter: 2022Q2

REPORT INFORMATION
  Report Type: Spontaneous
  Country: GB (occurrence: GB)
  Receive Date: 20220601
  Receipt Date: 20220601
  Transmission Date: 20220721
  Serious: Yes (Other)
  Sender: FDA-Public Use
  Company Number: GB-LUPIN PHARMACEUTICALS INC.-2022-07826

PATIENT
  Age: 7 Year
  Sex: Male

DRUGS (6)
  1. LEVETIRACETAM [Suspect]
     Active Substance: LEVETIRACETAM
     Indication: Generalised tonic-clonic seizure
     Dosage: 45 MILLIGRAM/KILOGRAM, QD
     Route: 065
  2. CLOBAZAM [Suspect]
     Active Substance: CLOBAZAM
     Indication: Movement disorder
     Dosage: UNK
     Route: 065
  3. TRIHEXYPHENIDYL [Concomitant]
     Active Substance: TRIHEXYPHENIDYL
     Indication: Movement disorder
     Dosage: UNK
     Route: 065
  4. BETAINE [Concomitant]
     Active Substance: BETAINE
     Indication: Product used for unknown indication
     Dosage: 1.3 GRAM (TWICE DAILY; 120 MG/KG/DAY)
     Route: 048
  5. NITROUS OXIDE [Concomitant]
     Active Substance: NITROUS OXIDE
     Indication: General anaesthesia
     Dosage: UNK
     Route: 065
  6. HYDROXOCOBALAMIN [Concomitant]
     Active Substance: HYDROXOCOBALAMIN
     Indication: Vitamin B12 deficiency
     Dosage: 1 MILLIGRAM, QD
     Route: 030

REACTIONS (2)
  - Drug ineffective [Unknown]
  - Off label use [Unknown]
